FAERS Safety Report 7072061-5 (Version None)
Quarter: 2010Q4

REPORT INFORMATION
  Report Type: 
  Country: None (occurrence: None)
  Receive Date: 20101029
  Receipt Date: 20101025
  Transmission Date: 20110411
  Serious: Yes (Other)
  Sender: FDA-Public Use
  Company Number: PHHY2010US68027

PATIENT
  Sex: Female

DRUGS (4)
  1. EXTAVIA [Suspect]
     Indication: MULTIPLE SCLEROSIS
     Dosage: 0.25 MG, QOD
     Route: 058
     Dates: start: 20100801
  2. STEROIDS NOS [Suspect]
     Indication: MULTIPLE SCLEROSIS RELAPSE
     Dosage: UNK
  3. FLEXERIL [Concomitant]
  4. LORCET-HD [Concomitant]

REACTIONS (7)
  - ARTHRALGIA [None]
  - ARTHROPATHY [None]
  - GAIT DISTURBANCE [None]
  - JOINT SWELLING [None]
  - MUSCULOSKELETAL DISCOMFORT [None]
  - OSTEONECROSIS [None]
  - PAIN IN EXTREMITY [None]
